FAERS Safety Report 18083519 (Version 1)
Quarter: 2020Q3

REPORT INFORMATION
  Report Type: Spontaneous
  Country: US (occurrence: US)
  Receive Date: 20200728
  Receipt Date: 20200728
  Transmission Date: 20201103
  Serious: No
  Sender: FDA-Public Use
  Company Number: US-PERRIGO-20US000274

PATIENT
  Age: 81 Year
  Sex: Male
  Weight: 79.37 kg

DRUGS (2)
  1. GABAPENTIN. [Concomitant]
     Active Substance: GABAPENTIN
     Indication: NEUROPATHY PERIPHERAL
     Dosage: UNK
     Route: 065
  2. MINOXIDIL. [Suspect]
     Active Substance: MINOXIDIL
     Indication: ALOPECIA
     Dosage: 1 ML, BID
     Route: 061
     Dates: start: 201910, end: 202003

REACTIONS (4)
  - Application site exfoliation [Recovering/Resolving]
  - Application site pruritus [Recovering/Resolving]
  - Fungal skin infection [Recovering/Resolving]
  - Application site dryness [Recovering/Resolving]

NARRATIVE: CASE EVENT DATE: 201911
